FAERS Safety Report 6141932-6 (Version None)
Quarter: 2009Q1

REPORT INFORMATION
  Report Type: 
  Country: None (occurrence: None)
  Receive Date: 20090331
  Receipt Date: 20090325
  Transmission Date: 20090719
  Serious: Yes (Death, Hospitalization)
  Sender: FDA-Public Use
  Company Number: 2008JP005771

PATIENT
  Age: 76 Year
  Sex: Male
  Weight: 59.4 kg

DRUGS (8)
  1. PROGRAF [Suspect]
     Indication: RHEUMATOID ARTHRITIS
     Dosage: 1.5 MG, UID/QD, ORAL
     Route: 048
     Dates: start: 20070629, end: 20071111
  2. VESICARE [Suspect]
     Indication: URGE INCONTINENCE
     Dosage: 5 MG, UID/QD, ORAL
     Route: 048
     Dates: start: 20071019, end: 20071111
  3. MOBIC [Concomitant]
  4. FOSAMAX [Concomitant]
  5. PREDNISOLONE [Concomitant]
  6. URIEF CAPSULE [Concomitant]
  7. YAKUBAN (FLURBIPROFEN) [Concomitant]
  8. MYSER (DIFLUPREDNATE) [Concomitant]

REACTIONS (8)
  - ARTHROPOD STING [None]
  - COLLAGEN DISORDER [None]
  - CONDITION AGGRAVATED [None]
  - INFECTION [None]
  - INTERSTITIAL LUNG DISEASE [None]
  - LUNG ABSCESS [None]
  - PULMONARY ALVEOLAR HAEMORRHAGE [None]
  - URGE INCONTINENCE [None]
